FAERS Safety Report 4511394-0 (Version None)
Quarter: 2004Q4

REPORT INFORMATION
  Report Type: 
  Country: None (occurrence: None)
  Receive Date: 20041123
  Receipt Date: 20041123
  Transmission Date: 20050328
  Serious: Yes (Hospitalization)
  Sender: FDA-Public Use
  Company Number: None

PATIENT
  Age: 66 Year
  Sex: Male

DRUGS (4)
  1. METHOTREXATE [Suspect]
     Indication: ACUTE LYMPHOCYTIC LEUKAEMIA
     Dosage: 12 MG  TWO DOSES INTRATHECAL
     Route: 037
     Dates: start: 20040408, end: 20040416
  2. METHOTREXATE [Suspect]
     Indication: LEUKAEMIA RECURRENT
     Dosage: 12 MG  TWO DOSES INTRATHECAL
     Route: 037
     Dates: start: 20040408, end: 20040416
  3. CYTARABINE [Suspect]
     Indication: ACUTE LYMPHOCYTIC LEUKAEMIA
     Dosage: 50  MG  TWO DOSES INTRATHECAL
     Route: 037
     Dates: start: 20040413, end: 20040430
  4. CYTARABINE [Suspect]
     Indication: LEUKAEMIA RECURRENT
     Dosage: 50  MG  TWO DOSES INTRATHECAL
     Route: 037
     Dates: start: 20040413, end: 20040430

REACTIONS (1)
  - NEUTROPENIA [None]
